FAERS Safety Report 11645615 (Version 2)
Quarter: 2015Q4

REPORT INFORMATION
  Report Type: Report from Study
  Country: US (occurrence: US)
  Receive Date: 20151020
  Receipt Date: 20151020
  Transmission Date: 20160304
  Serious: Yes (Other)
  Sender: FDA-Public Use
  Company Number: US-BAYER-2015-446134

PATIENT
  Age: 83 Year
  Sex: Male
  Weight: 117.46 kg

DRUGS (3)
  1. ASPIRIN. [Interacting]
     Active Substance: ASPIRIN
     Indication: HIP ARTHROPLASTY
  2. ENOXAPARIN [Interacting]
     Active Substance: ENOXAPARIN
     Dosage: UNK UNK, BID
  3. ASPIRIN. [Suspect]
     Active Substance: ASPIRIN
     Indication: THROMBOSIS PROPHYLAXIS
     Dosage: 325 MG, BID
     Dates: start: 20110621

REACTIONS (2)
  - Haematuria [None]
  - Labelled drug-drug interaction medication error [None]
